FAERS Safety Report 16618657 (Version 2)
Quarter: 2019Q3

REPORT INFORMATION
  Report Type: Report from Study
  Country: US (occurrence: US)
  Receive Date: 20190723
  Receipt Date: 20190813
  Transmission Date: 20191004
  Serious: Yes (Hospitalization)
  Sender: FDA-Public Use
  Company Number: US-ALLERGAN-1929736US

PATIENT
  Sex: Female

DRUGS (5)
  1. HEART MEDICINE [Concomitant]
     Active Substance: UNSPECIFIED INGREDIENT
  2. BLOOD PRESSURE MEDICATION [Concomitant]
     Active Substance: UNSPECIFIED INGREDIENT
     Indication: HYPERTENSION
  3. THYROID MEDICATION [Concomitant]
     Active Substance: UNSPECIFIED INGREDIENT
     Indication: HYPOTHYROIDISM
  4. LIDODERM [Concomitant]
     Active Substance: LIDOCAINE
     Indication: SPINAL FRACTURE
  5. ELUXADOLINE 75MG TAB (11306X) [Suspect]
     Active Substance: ELUXADOLINE
     Indication: COLITIS MICROSCOPIC
     Dosage: 100 MG, BID
     Route: 048
     Dates: start: 201706, end: 201904

REACTIONS (4)
  - Pneumonia [Recovered/Resolved]
  - Therapy cessation [Unknown]
  - Diarrhoea [Unknown]
  - Off label use [Unknown]

NARRATIVE: CASE EVENT DATE: 2019
